FAERS Safety Report 23626051 (Version 2)
Quarter: 2024Q2

REPORT INFORMATION
  Report Type: Other
  Country: MX (occurrence: None)
  Receive Date: 20240313
  Receipt Date: 20240411
  Transmission Date: 20240716
  Serious: Yes (Other)
  Sender: FDA-Public Use
  Company Number: MX-ROCHE-3523640

PATIENT
  Age: 38 Year
  Sex: Male
  Weight: 81 kg

DRUGS (2)
  1. POLIVY [Suspect]
     Active Substance: POLATUZUMAB VEDOTIN-PIIQ
     Indication: Diffuse large B-cell lymphoma
     Route: 042
     Dates: start: 202308, end: 202311
  2. POLIVY [Suspect]
     Active Substance: POLATUZUMAB VEDOTIN-PIIQ
     Route: 042

REACTIONS (4)
  - Diffuse large B-cell lymphoma recurrent [Unknown]
  - Amnesia [Recovered/Resolved]
  - Mobility decreased [Recovered/Resolved]
  - Areflexia [Recovered/Resolved]

NARRATIVE: CASE EVENT DATE: 20240101
